FAERS Safety Report 6533908-1 (Version None)
Quarter: 2010Q1

REPORT INFORMATION
  Report Type: 
  Country: None (occurrence: None)
  Receive Date: 20100111
  Receipt Date: 20090930
  Transmission Date: 20100710
  Serious: No
  Sender: FDA-Public Use
  Company Number: US-ABBOTT-09P-163-0601181-00

PATIENT

DRUGS (2)
  1. VICODIN [Suspect]
     Indication: PAIN MANAGEMENT
     Dosage: UNKNOWN
     Dates: start: 20020101, end: 20020101
  2. DEMEROL [Suspect]
     Indication: PAIN MANAGEMENT
     Dosage: UNKNOWN
     Dates: start: 20020101, end: 20020101

REACTIONS (1)
  - RASH [None]
